FAERS Safety Report 9353319 (Version 1)
Quarter: 2013Q2

REPORT INFORMATION
  Report Type: Spontaneous
  Country: FR (occurrence: FR)
  Receive Date: 20130618
  Receipt Date: 20130618
  Transmission Date: 20140414
  Serious: Yes (Death, Hospitalization, Other)
  Sender: FDA-Public Use
  Company Number: FR-BRISTOL-MYERS SQUIBB COMPANY-18998302

PATIENT
  Age: 78 Year
  Sex: Male

DRUGS (4)
  1. HYDREA CAPS 500 MG [Suspect]
     Indication: ESSENTIAL THROMBOCYTHAEMIA
     Route: 048
     Dates: start: 20130209, end: 20130309
  2. CIPROFLOXACIN [Suspect]
     Route: 048
     Dates: start: 20130301, end: 20130307
  3. CEFTRIAXONE [Suspect]
     Route: 048
     Dates: start: 20130301, end: 20130310
  4. INEXIUM [Suspect]
     Route: 048
     Dates: start: 20130211, end: 20130306

REACTIONS (5)
  - Multi-organ failure [Fatal]
  - Respiratory failure [Unknown]
  - Cardiac arrest [Unknown]
  - Bronchopneumopathy [Unknown]
  - Pancytopenia [Recovered/Resolved]
